FAERS Safety Report 8956192 (Version 2)
Quarter: 2013Q1

REPORT INFORMATION
  Report Type: Spontaneous
  Country: US (occurrence: US)
  Receive Date: 20121210
  Receipt Date: 20130108
  Transmission Date: 20140127
  Serious: No
  Sender: FDA-Public Use
  Company Number: US-009507513-1212USA002807

PATIENT
  Age: 84 Year
  Sex: Male

DRUGS (1)
  1. COSOPT [Suspect]
     Indication: GLAUCOMA
     Dosage: UNK, TID
     Route: 047
     Dates: start: 1992

REACTIONS (2)
  - Cough [Recovering/Resolving]
  - Product container issue [Unknown]
